FAERS Safety Report 19383107 (Version 2)
Quarter: 2021Q3

REPORT INFORMATION
  Report Type: Spontaneous
  Country: ES (occurrence: ES)
  Receive Date: 20210607
  Receipt Date: 20210819
  Transmission Date: 20211014
  Serious: Yes (Life-Threatening, Hospitalization, Other)
  Sender: FDA-Public Use
  Company Number: ES-MYLANLABS-2021M1032481

PATIENT
  Age: 75 Year
  Sex: Female

DRUGS (9)
  1. NOVOMIX [Concomitant]
     Active Substance: INSULIN ASPART
     Dosage: 56 INTERNATIONAL UNIT, QD (56UI EVERY DAY)
  2. ZALDIAR [Concomitant]
     Active Substance: ACETAMINOPHEN\TRAMADOL HYDROCHLORIDE
     Dosage: 1 DOSAGE FORM, Q8H (1 EVERY 8 HOURS)
  3. PREGABALINA [Concomitant]
     Active Substance: PREGABALIN
     Dosage: 1 EVERY 12 HOURS.
     Dates: end: 20191209
  4. CROMATONBIC B12 [Concomitant]
     Dosage: 1 PER MONTH
  5. ALPRAZOLAM. [Suspect]
     Active Substance: ALPRAZOLAM
     Indication: INSOMNIA
     Dosage: 0.5 MILLIGRAM, Q8H (0,5MG EVERY 8 HOURS)
     Route: 048
     Dates: start: 20190828, end: 20191204
  6. EMCONCOR [Concomitant]
     Active Substance: BISOPROLOL FUMARATE
     Dosage: 1 DOSAGE FORM, BID (1 TABLET EVERY 12 HOURS)
     Dates: end: 20191204
  7. SINTROM [Concomitant]
     Active Substance: ACENOCOUMAROL
     Dosage: IRREGULAR ACCORDING TO SCHEME
  8. JANUMET [Concomitant]
     Active Substance: METFORMIN HYDROCHLORIDE\SITAGLIPTIN PHOSPHATE
     Indication: DIABETES MELLITUS
     Dosage: 1 DOSAGE FORM, BID (1 EVERY 12 HOURS)
     Dates: start: 20101203
  9. FLUOXETINA                         /00724401/ [Concomitant]
     Active Substance: FLUOXETINE HYDROCHLORIDE
     Dosage: 20 MILLIGRAM, QD (20MG EVERY 24 HOURS)
     Dates: end: 20191209

REACTIONS (1)
  - Altered state of consciousness [Recovered/Resolved]

NARRATIVE: CASE EVENT DATE: 20191204
